FAERS Safety Report 17143261 (Version 1)
Quarter: 2019Q4

REPORT INFORMATION
  Report Type: Spontaneous
  Country: US (occurrence: US)
  Receive Date: 20191212
  Receipt Date: 20191212
  Transmission Date: 20200122
  Serious: Yes (Other)
  Sender: FDA-Public Use
  Company Number: US-NOVOPROD-700528

PATIENT
  Age: 71 Year
  Sex: Male

DRUGS (3)
  1. NOVOLOG [Concomitant]
     Active Substance: INSULIN ASPART
     Indication: PRODUCT USED FOR UNKNOWN INDICATION
     Dosage: 5-10 UNITS BEFORE MEALS
     Route: 058
  2. TRESIBA [Suspect]
     Active Substance: INSULIN DEGLUDEC
     Dosage: DOSE DECREASED TO 30 IU, BID ( 30 UNITS TWICE DAILY)
     Route: 058
  3. TRESIBA [Suspect]
     Active Substance: INSULIN DEGLUDEC
     Indication: PRODUCT USED FOR UNKNOWN INDICATION
     Dosage: 65 IU, QD (65 UNITS ONCE DAILY)
     Route: 058

REACTIONS (10)
  - Joint injury [Unknown]
  - Blood glucose increased [Unknown]
  - Syncope [Unknown]
  - Hot flush [Unknown]
  - Insulin resistance [Unknown]
  - Inappropriate schedule of product administration [Unknown]
  - Dysgeusia [Unknown]
  - Dizziness [Unknown]
  - Fall [Unknown]
  - Disturbance in attention [Unknown]
